FAERS Safety Report 5021877-5 (Version None)
Quarter: 2006Q2

REPORT INFORMATION
  Report Type: 
  Country: None (occurrence: None)
  Receive Date: 20060609
  Receipt Date: 20060530
  Transmission Date: 20061013
  Serious: Yes (Hospitalization)
  Sender: FDA-Public Use
  Company Number: BR-JNJFOC-20060600810

PATIENT
  Age: 6 Year
  Sex: Female
  Weight: 40 kg

DRUGS (1)
  1. HALDOL [Suspect]
     Indication: DRUG USE FOR UNKNOWN INDICATION
     Dosage: (2 TABLETS)
     Route: 048

REACTIONS (4)
  - APHASIA [None]
  - COORDINATION ABNORMAL [None]
  - INCORRECT DOSE ADMINISTERED [None]
  - SALIVARY HYPERSECRETION [None]
